FAERS Safety Report 15206995 (Version 1)
Quarter: 2018Q3

REPORT INFORMATION
  Report Type: Other
  Country: FR (occurrence: FR)
  Receive Date: 20180727
  Receipt Date: 20180727
  Transmission Date: 20181010
  Serious: Yes (Hospitalization)
  Sender: FDA-Public Use
  Company Number: FR-MACLEODS PHARMACEUTICALS US LTD-MAC2018015692

PATIENT

DRUGS (5)
  1. SERESTA [Concomitant]
     Active Substance: OXAZEPAM
     Indication: BIPOLAR DISORDER
     Dosage: 25 MILLIGRAM, QD, TABLET BREACKABLE
     Route: 048
     Dates: end: 20180607
  2. CITALOPRAM [Concomitant]
     Active Substance: CITALOPRAM HYDROBROMIDE
     Indication: BIPOLAR DISORDER
     Dosage: 20 MILLIGRAM, QD
     Route: 048
     Dates: end: 20180607
  3. ARIPIPRAZOLE  10 MG [Suspect]
     Active Substance: ARIPIPRAZOLE
     Indication: BIPOLAR DISORDER
     Dosage: 10 MILLIGRAM, QD
     Route: 048
     Dates: start: 201803, end: 201805
  4. RAMIPRIL. [Concomitant]
     Active Substance: RAMIPRIL
     Indication: HYPERTENSION
     Dosage: 10 MILLIGRAM, QD
     Route: 048
     Dates: end: 20180606
  5. TERALITHE [Concomitant]
     Active Substance: LITHIUM CARBONATE
     Indication: BIPOLAR DISORDER
     Dosage: 600 MILLIGRAM, QD, BREAKABLE SUSTAINED RELEASE TABLET
     Route: 048
     Dates: end: 20180605

REACTIONS (4)
  - Abnormal behaviour [Recovered/Resolved]
  - Extrapyramidal disorder [Recovered/Resolved]
  - Confusional state [Recovered/Resolved]
  - Irregular sleep wake rhythm disorder [Recovered/Resolved]

NARRATIVE: CASE EVENT DATE: 201804
